FAERS Safety Report 9851921 (Version 16)
Quarter: 2014Q2

REPORT INFORMATION
  Report Type: Report from Study
  Country: CA (occurrence: CA)
  Receive Date: 20140129
  Receipt Date: 20140610
  Transmission Date: 20141212
  Serious: Yes (Hospitalization, Other)
  Sender: FDA-Public Use
  Company Number: CA-ROCHE-1326854

PATIENT
  Age: 73 Year
  Sex: Male
  Weight: 90.7 kg

DRUGS (8)
  1. AVASTIN [Suspect]
     Indication: GLIOBLASTOMA
     Route: 042
     Dates: start: 20131212, end: 20140501
  2. AVASTIN [Suspect]
     Route: 042
     Dates: start: 20140109, end: 20140516
  3. TYLENOL [Concomitant]
     Route: 048
     Dates: start: 20131212
  4. BENADRYL (CANADA) [Concomitant]
     Route: 048
     Dates: start: 20131212
  5. ACCURETIC [Concomitant]
     Route: 065
     Dates: end: 20140111
  6. ADALAT [Concomitant]
  7. DEXAMETHASONE [Concomitant]
     Route: 065
     Dates: end: 20140111
  8. PANTOPRAZOLE [Concomitant]

REACTIONS (20)
  - Convulsion [Recovered/Resolved]
  - Disease progression [Unknown]
  - Orthostatic hypotension [Unknown]
  - Dyspnoea [Not Recovered/Not Resolved]
  - Amnesia [Recovering/Resolving]
  - Insomnia [Not Recovered/Not Resolved]
  - Infected cyst [Unknown]
  - Epilepsy [Unknown]
  - Blood potassium decreased [Unknown]
  - Weight increased [Unknown]
  - Fatigue [Recovering/Resolving]
  - Epistaxis [Recovered/Resolved]
  - Dizziness [Recovering/Resolving]
  - Hypertension [Unknown]
  - Musculoskeletal pain [Not Recovered/Not Resolved]
  - Abscess limb [Recovering/Resolving]
  - Heart rate decreased [Unknown]
  - Neoplasm progression [Unknown]
  - Nausea [Not Recovered/Not Resolved]
  - Somnolence [Not Recovered/Not Resolved]
